FAERS Safety Report 4664500-1 (Version None)
Quarter: 2005Q2

REPORT INFORMATION
  Report Type: 
  Country: None (occurrence: None)
  Receive Date: 20050518
  Receipt Date: 20050504
  Transmission Date: 20051028
  Serious: Yes (Other)
  Sender: FDA-Public Use
  Company Number: US-SP-2005-00841

PATIENT
  Age: 35 Year
  Sex: Male

DRUGS (8)
  1. DIPHTHERIA AND TETANUS TOXOIDS [Suspect]
     Indication: IMMUNISATION
     Route: 065
  2. TUBERCULIN PPD [Suspect]
     Indication: TUBERCULIN TEST
     Route: 065
  3. ORAL POLIO VACCINE [Suspect]
     Indication: IMMUNISATION
     Route: 065
  4. HEPATITIS A VACCINE [Suspect]
     Indication: IMMUNISATION
     Route: 065
  5. M-M-R/MEASLES, MUMPS AND RUBELLA VACCINE [Suspect]
     Indication: IMMUNISATION
     Route: 065
  6. TYPHOID VACCINE [Suspect]
     Indication: IMMUNISATION
     Route: 065
  7. BETA-BLOCKER [Concomitant]
  8. DIURETIC [Concomitant]

REACTIONS (5)
  - AUTOIMMUNE HEPATITIS [None]
  - FATIGUE [None]
  - HEPATIC ENZYME INCREASED [None]
  - INFLUENZA LIKE ILLNESS [None]
  - MALAISE [None]
